FAERS Safety Report 8488185-1 (Version None)
Quarter: 2012Q3

REPORT INFORMATION
  Report Type: 
  Country: None (occurrence: None)
  Receive Date: 20120705
  Receipt Date: 20120625
  Transmission Date: 20120928
  Serious: Yes (Other)
  Sender: FDA-Public Use
  Company Number: JP-VERTEX PHARMACEUTICALS INC.-AE-2012-009102

PATIENT
  Age: 59 Year
  Sex: Female

DRUGS (11)
  1. TELAVIC (TELAPREVIR) [Suspect]
     Route: 048
     Dates: start: 20120604, end: 20120612
  2. REBETOL [Concomitant]
     Route: 048
     Dates: start: 20120418, end: 20120615
  3. PREDNISOLONE SODIUM SUCCINATE INJ [Concomitant]
     Route: 048
     Dates: start: 20120611
  4. TELAVIC (TELAPREVIR) [Suspect]
     Route: 048
     Dates: start: 20120613, end: 20120615
  5. PEG-INTRON [Concomitant]
     Route: 058
     Dates: end: 20120605
  6. REBETOL [Concomitant]
     Indication: HEPATITIS C
     Route: 048
     Dates: start: 20120412
  7. PEG-INTRON [Concomitant]
     Indication: HEPATITIS C
     Route: 058
     Dates: start: 20120412, end: 20120501
  8. PEG-INTRON [Concomitant]
     Route: 058
     Dates: start: 20120606, end: 20120613
  9. TELAVIC (TELAPREVIR) [Suspect]
     Indication: HEPATITIS C
     Route: 048
     Dates: start: 20120412, end: 20120508
  10. TELAVIC (TELAPREVIR) [Suspect]
     Route: 048
     Dates: start: 20120509
  11. PEG-INTRON [Concomitant]
     Route: 058
     Dates: start: 20120502

REACTIONS (2)
  - RASH [None]
  - SKIN DISORDER [None]
